FAERS Safety Report 22276793 (Version 4)
Quarter: 2023Q4

REPORT INFORMATION
  Report Type: Other
  Country: DE (occurrence: None)
  Receive Date: 20230503
  Receipt Date: 20231205
  Transmission Date: 20240110
  Serious: Yes (Hospitalization)
  Sender: FDA-Public Use
  Company Number: DE-ROCHE-3337489

PATIENT
  Age: 61 Year
  Sex: Female

DRUGS (9)
  1. OCREVUS [Suspect]
     Active Substance: OCRELIZUMAB
     Indication: Relapsing multiple sclerosis
     Route: 042
     Dates: start: 20180712, end: 20180726
  2. OCREVUS [Suspect]
     Active Substance: OCRELIZUMAB
     Route: 042
     Dates: start: 20190131
  3. VIGIL [Concomitant]
     Indication: Fatigue
     Route: 048
     Dates: start: 20190328
  4. BACLOFEN [Concomitant]
     Active Substance: BACLOFEN
     Indication: Diplegia
     Route: 048
     Dates: start: 20171110
  5. BACLOFEN [Concomitant]
     Active Substance: BACLOFEN
     Indication: Muscular weakness
  6. BENSERAZIDE\LEVODOPA [Concomitant]
     Active Substance: BENSERAZIDE\LEVODOPA
     Indication: Musculoskeletal stiffness
     Route: 048
     Dates: start: 20190328
  7. MODAFINIL [Concomitant]
     Active Substance: MODAFINIL
     Indication: Fatigue
     Route: 048
     Dates: start: 20181022
  8. CITALOPRAM [Concomitant]
     Active Substance: CITALOPRAM HYDROBROMIDE
     Indication: Depressed mood
     Route: 048
     Dates: start: 20190328
  9. GABAPENTIN [Concomitant]
     Active Substance: GABAPENTIN
     Indication: Musculoskeletal stiffness
     Route: 048
     Dates: start: 20190725

REACTIONS (4)
  - Respiratory failure [Recovered/Resolved]
  - Atypical pneumonia [Recovered/Resolved]
  - Pneumonia [Unknown]
  - Hypertension [Not Recovered/Not Resolved]

NARRATIVE: CASE EVENT DATE: 20230307
